FAERS Safety Report 9145910 (Version 2)
Quarter: 2013Q2

REPORT INFORMATION
  Report Type: Spontaneous
  Country: US (occurrence: US)
  Receive Date: 20130307
  Receipt Date: 20130501
  Transmission Date: 20140414
  Serious: Yes (Hospitalization)
  Sender: FDA-Public Use
  Company Number: US-NOVOPROD-372135

PATIENT
  Age: 6 Year
  Sex: Male
  Weight: 13.8 kg

DRUGS (2)
  1. NORDITROPIN FLEXPRO 3.3 MG/ML [Suspect]
     Indication: GROWTH HORMONE DEFICIENCY
     Dosage: 0.7 MG/DAY
     Route: 058
     Dates: start: 20120711
  2. MULTIVITAMIN                       /00097801/ [Concomitant]
     Indication: PRODUCT USED FOR UNKNOWN INDICATION
     Dosage: 1 TAB, QD
     Route: 048

REACTIONS (2)
  - Febrile convulsion [Recovered/Resolved]
  - Vomiting [Recovered/Resolved]
